FAERS Safety Report 8920462 (Version 1)
Quarter: 2012Q4

REPORT INFORMATION
  Report Type: 
  Country: US (occurrence: US)
  Receive Date: 20121122
  Receipt Date: 20121122
  Transmission Date: 20130627
  Serious: No
  Sender: FDA-Public Use
  Company Number: US-009507513-1211USA004518

PATIENT
  Sex: Female

DRUGS (1)
  1. NEXPLANON [Suspect]
     Indication: CONTRACEPTION
     Dosage: 1 rod
     Route: 059
     Dates: start: 201208, end: 20121025

REACTIONS (2)
  - Implant site pain [Recovered/Resolved]
  - Device breakage [Unknown]
